FAERS Safety Report 9323825 (Version 3)
Quarter: 2015Q1

REPORT INFORMATION
  Report Type: Spontaneous
  Country: DK (occurrence: DK)
  Receive Date: 20130603
  Receipt Date: 20150312
  Transmission Date: 20150721
  Serious: Yes (Hospitalization, Other)
  Sender: FDA-Public Use
  Company Number: DK-PFIZER INC-2013166351

PATIENT
  Age: 39 Year
  Sex: Male
  Weight: 105 kg

DRUGS (5)
  1. LYRICA [Suspect]
     Active Substance: PREGABALIN
     Indication: SCHIZOPHRENIA, PARANOID TYPE
     Dosage: 150 + 225 MG MORNING AND 150 MG IN THE EVENING
     Route: 048
     Dates: start: 20121218
  2. CLOZAPINE ACTAVIS [Interacting]
     Active Substance: CLOZAPINE
     Indication: SCHIZOPHRENIA, PARANOID TYPE
     Dosage: DAILY DOSE: 400  (50 MG + 350 MG.)
     Route: 048
     Dates: start: 20110204
  3. ATROPINE [Concomitant]
     Active Substance: ATROPINE
     Indication: SALIVARY HYPERSECRETION
     Dosage: 0.25 MG, 2X/DAY
     Route: 048
  4. RIVOTRIL [Concomitant]
     Active Substance: CLONAZEPAM
     Indication: RESTLESSNESS
     Dosage: 0.5 MG, 1X/DAY
     Route: 048
     Dates: start: 20110308
  5. CITALOPRAM [Concomitant]
     Active Substance: CITALOPRAM HYDROBROMIDE
     Indication: DEPRESSION
     Dosage: 20 MG, 1X/DAY
     Route: 048
     Dates: start: 20090701

REACTIONS (6)
  - Loss of consciousness [Recovering/Resolving]
  - Drug interaction [Recovering/Resolving]
  - Off label use [Unknown]
  - Dizziness [Recovering/Resolving]
  - Seizure [Recovered/Resolved]
  - Foot fracture [Recovered/Resolved]

NARRATIVE: CASE EVENT DATE: 20121218
